FAERS Safety Report 14775344 (Version 1)
Quarter: 2018Q2

REPORT INFORMATION
  Report Type: Spontaneous
  Country: IT (occurrence: IT)
  Receive Date: 20180418
  Receipt Date: 20180418
  Transmission Date: 20180711
  Serious: Yes (Hospitalization, Other)
  Sender: FDA-Public Use
  Company Number: IT-PFIZER INC-2018151286

PATIENT
  Age: 38 Year
  Sex: Female

DRUGS (1)
  1. AMPICILLIN SODIUM. [Suspect]
     Active Substance: AMPICILLIN SODIUM
     Indication: ANTIBIOTIC PROPHYLAXIS
     Dosage: 3 G, 1X/DAY
     Route: 042
     Dates: start: 20180113, end: 20180117

REACTIONS (4)
  - Erythema [Recovering/Resolving]
  - Rash pustular [Recovering/Resolving]
  - Acute generalised exanthematous pustulosis [Unknown]
  - Pustular psoriasis [Unknown]

NARRATIVE: CASE EVENT DATE: 20180117
